FAERS Safety Report 9243240 (Version 1)
Quarter: 2013Q2

REPORT INFORMATION
  Report Type: Spontaneous
  Country: US (occurrence: US)
  Receive Date: 20130419
  Receipt Date: 20130419
  Transmission Date: 20140414
  Serious: Yes (Hospitalization, Other)
  Sender: FDA-Public Use
  Company Number: CHPA2013US006551

PATIENT
  Age: 79 Year
  Sex: Female

DRUGS (1)
  1. BENEFIBER STICK PACKS [Suspect]
     Dosage: UNK, UNK
     Route: 048

REACTIONS (10)
  - Diverticulitis [Unknown]
  - Infection [Unknown]
  - Gastrointestinal inflammation [Unknown]
  - Faecal vomiting [Unknown]
  - Bowel movement irregularity [Unknown]
  - Malaise [Unknown]
  - Aphagia [Unknown]
  - Dehydration [Unknown]
  - Nausea [Unknown]
  - Weight decreased [Unknown]
